FAERS Safety Report 25046976 (Version 1)
Quarter: 2025Q1

REPORT INFORMATION
  Report Type: Spontaneous
  Country: GB (occurrence: GB)
  Receive Date: 20250306
  Receipt Date: 20250306
  Transmission Date: 20250408
  Serious: Yes (Disabling, Other)
  Sender: PFIZER
  Company Number: None

PATIENT
  Age: 36 Year
  Sex: Female

DRUGS (1)
  1. DEPO-PROVERA [Suspect]
     Active Substance: MEDROXYPROGESTERONE ACETATE
     Dates: start: 20250210

REACTIONS (2)
  - Maternal exposure during breast feeding [Unknown]
  - Lactation insufficiency [Not Recovered/Not Resolved]

NARRATIVE: CASE EVENT DATE: 20250210
